FAERS Safety Report 7592153-1 (Version None)
Quarter: 2011Q3

REPORT INFORMATION
  Report Type: 
  Country: None (occurrence: None)
  Receive Date: 20110705
  Receipt Date: 20110705
  Transmission Date: 20111222
  Serious: Yes (Death)
  Sender: FDA-Public Use
  Company Number: None

PATIENT
  Age: 46 Year
  Sex: Male
  Weight: 115.6672 kg

DRUGS (1)
  1. METHOTREXATE [Suspect]
     Indication: RHEUMATOID ARTHRITIS
     Dosage: 4 TABLETS ONCE A WEEK
     Dates: start: 20110614, end: 20110614

REACTIONS (5)
  - MALAISE [None]
  - COMA [None]
  - NAUSEA [None]
  - CEREBROVASCULAR ACCIDENT [None]
  - FATIGUE [None]
